FAERS Safety Report 14530446 (Version 1)
Quarter: 2018Q1

REPORT INFORMATION
  Report Type: Spontaneous
  Country: US (occurrence: US)
  Receive Date: 20180214
  Receipt Date: 20180214
  Transmission Date: 20180509
  Serious: No
  Sender: FDA-Public Use
  Company Number: US-GLAXOSMITHKLINE-US2018024363

PATIENT
  Sex: Female

DRUGS (8)
  1. RUFINAMIDE [Concomitant]
     Active Substance: RUFINAMIDE
  2. VALSARTAN HCT [Concomitant]
     Active Substance: HYDROCHLOROTHIAZIDE\VALSARTAN
  3. TRAMADOL. [Concomitant]
     Active Substance: TRAMADOL
  4. DOXAZOSIN [Concomitant]
     Active Substance: DOXAZOSIN\DOXAZOSIN MESYLATE
  5. ALPRAZOLAM. [Concomitant]
     Active Substance: ALPRAZOLAM
  6. GABAPENTIN. [Concomitant]
     Active Substance: GABAPENTIN
  7. BENLYSTA [Suspect]
     Active Substance: BELIMUMAB
     Indication: SYSTEMIC LUPUS ERYTHEMATOSUS
     Dosage: 700 MG, UNK
     Route: 042
  8. TRAZODONE [Concomitant]
     Active Substance: TRAZODONE HYDROCHLORIDE

REACTIONS (6)
  - Injection site bruising [Unknown]
  - Fluid retention [Recovered/Resolved]
  - Diarrhoea [Recovered/Resolved]
  - Colonoscopy [Unknown]
  - Weight decreased [Unknown]
  - Vein collapse [Recovered/Resolved]
